FAERS Safety Report 7524382-7 (Version None)
Quarter: 2011Q2

REPORT INFORMATION
  Report Type: 
  Country: None (occurrence: None)
  Receive Date: 20110606
  Receipt Date: 20091109
  Transmission Date: 20111010
  Serious: No
  Sender: FDA-Public Use
  Company Number: 2009BI036553

PATIENT
  Sex: Male

DRUGS (2)
  1. TYSABRI [Suspect]
     Indication: MULTIPLE SCLEROSIS
     Route: 042
     Dates: start: 20080327, end: 20100901
  2. TYSABRI [Suspect]
     Route: 042
     Dates: start: 20110501

REACTIONS (6)
  - TREMOR [None]
  - AGITATION [None]
  - TOOTH EXTRACTION [None]
  - FALL [None]
  - COORDINATION ABNORMAL [None]
  - IRRITABILITY [None]
